FAERS Safety Report 5536715-1 (Version None)
Quarter: 2007Q4

REPORT INFORMATION
  Report Type: 
  Country: None (occurrence: None)
  Receive Date: 20071204
  Receipt Date: 20071119
  Transmission Date: 20080405
  Serious: Yes (Death)
  Sender: FDA-Public Use
  Company Number: 2007JP005261

PATIENT
  Age: 69 Year
  Sex: Female
  Weight: 45.5 kg

DRUGS (17)
  1. TACROLIMUS [Suspect]
     Indication: RHEUMATOID ARTHRITIS
     Dosage: 1.5 MG, D, ORAL
     Route: 048
     Dates: start: 20051222, end: 20070701
  2. PREDNISONE [Concomitant]
  3. SOL MEDROL (METHYLPREDNISOLONE, SUCCINATE SODIUM) INJECTION [Concomitant]
  4. METHYCOBAL (MECOBALAMIN) [Concomitant]
  5. DEPAS (ETIZOLAM) [Concomitant]
  6. MUCOSTA (REBAMIPIDE) [Concomitant]
  7. MEXITIL [Concomitant]
  8. MAGNESIUM OXIDE (MAGNESIUM OXIDE) [Concomitant]
  9. JUVELA (TOCOPHERYL NICOTINATE) [Concomitant]
  10. LAC B (LACTOBACILLUS BIFIDUS, LYOPHILIZED) [Concomitant]
  11. MARZULENE S (LEVOGLUTAMIDE, SODIUM GUALENATE) [Concomitant]
  12. RISEDRONATE SODIUM [Concomitant]
  13. BAKTAR (SULFAMETHOXAZOLE, TRIMETHOPRIM) [Concomitant]
  14. ALESION (EPINASTINE HYDROCHLORIDE) [Concomitant]
  15. RABEPRAZOLE SODIUM [Concomitant]
  16. CAMLEED (ENPROSTIL) [Concomitant]
  17. MINOCYCLINE HCL [Concomitant]

REACTIONS (2)
  - CONDITION AGGRAVATED [None]
  - INTERSTITIAL LUNG DISEASE [None]
